FAERS Safety Report 8756110 (Version 1)
Quarter: 2012Q4

REPORT INFORMATION
  Report Type: 
  Country: US (occurrence: US)
  Receive Date: 20120828
  Receipt Date: 20120828
  Transmission Date: 20130627
  Serious: No
  Sender: FDA-Public Use
  Company Number: US-PFIZER INC-2012207881

PATIENT
  Sex: Female

DRUGS (2)
  1. NORPACE [Suspect]
     Dosage: 100 mg, 2x/day
  2. NORPACE [Suspect]
     Dosage: 150 mg, 2x/day

REACTIONS (1)
  - Drug effect incomplete [Unknown]
